FAERS Safety Report 8307574-9 (Version None)
Quarter: 2012Q2

REPORT INFORMATION
  Report Type: 
  Country: None (occurrence: None)
  Receive Date: 20120424
  Receipt Date: 20120417
  Transmission Date: 20120825
  Serious: No
  Sender: FDA-Public Use
  Company Number: US-PFIZER INC-2012096150

PATIENT
  Sex: Female

DRUGS (2)
  1. XALKORI [Suspect]
     Dosage: 250 MG, UNK
     Dates: start: 20120126
  2. XALKORI [Suspect]

REACTIONS (3)
  - CONSTIPATION [None]
  - HEADACHE [None]
  - OEDEMA PERIPHERAL [None]
